FAERS Safety Report 18191800 (Version 3)
Quarter: 2021Q1

REPORT INFORMATION
  Report Type: Spontaneous
  Country: JP (occurrence: JP)
  Receive Date: 20200825
  Receipt Date: 20210310
  Transmission Date: 20210419
  Serious: Yes (Hospitalization)
  Sender: FDA-Public Use
  Company Number: NVSJ2020JP008014

PATIENT
  Age: 68 Year
  Sex: Male
  Weight: 58 kg

DRUGS (6)
  1. METGLUCO [Suspect]
     Active Substance: METFORMIN HYDROCHLORIDE
     Dosage: 250 MG, BID
     Route: 048
     Dates: start: 20150606, end: 20200816
  2. AZILVA [Concomitant]
     Active Substance: AZILSARTAN KAMEDOXOMIL
     Indication: HYPERTENSION
     Dosage: 20 MG, QD
     Route: 048
     Dates: start: 20190413
  3. EQUMET [Suspect]
     Active Substance: METFORMIN HYDROCHLORIDE\VILDAGLIPTIN
     Indication: TYPE 2 DIABETES MELLITUS
     Dosage: 1 DF (METFORMIN HYDROCHLORIDE 500MG/ VILDAGLIPTIN 50MG), BID
     Route: 048
     Dates: start: 20150606, end: 20200816
  4. METGLUCO [Suspect]
     Active Substance: METFORMIN HYDROCHLORIDE
     Indication: TYPE 2 DIABETES MELLITUS
     Dosage: 750 MG, QD
     Route: 048
     Dates: start: 20150606, end: 20200816
  5. AMARYL [Concomitant]
     Active Substance: GLIMEPIRIDE
     Indication: TYPE 2 DIABETES MELLITUS
     Dosage: 1 MG
     Route: 048
     Dates: start: 20200328
  6. CRESTOR [Concomitant]
     Active Substance: ROSUVASTATIN CALCIUM
     Indication: DYSLIPIDAEMIA
     Dosage: 2.5 MG, QD
     Route: 048
     Dates: start: 20130516

REACTIONS (14)
  - Anuria [Unknown]
  - Decreased appetite [Unknown]
  - Malaise [Unknown]
  - Atelectasis [Unknown]
  - Hyperkalaemia [Recovering/Resolving]
  - Vomiting [Unknown]
  - Hepatic steatosis [Unknown]
  - Lactic acidosis [Recovering/Resolving]
  - Dehydration [Unknown]
  - Heat illness [Unknown]
  - Acute kidney injury [Recovering/Resolving]
  - Diarrhoea [Unknown]
  - Urine output decreased [Unknown]
  - Myalgia [Unknown]

NARRATIVE: CASE EVENT DATE: 20200814
